FAERS Safety Report 4717356-2 (Version None)
Quarter: 2005Q3

REPORT INFORMATION
  Report Type: 
  Country: None (occurrence: None)
  Receive Date: 20050711
  Receipt Date: 20050404
  Transmission Date: 20060218
  Serious: Yes (Hospitalization)
  Sender: FDA-Public Use
  Company Number: A03200500516

PATIENT
  Age: 68 Year
  Sex: Male

DRUGS (6)
  1. UROXATRAL [Suspect]
     Indication: BENIGN PROSTATIC HYPERPLASIA
     Dosage: 10 MG ONCE - ORAL
     Route: 048
     Dates: start: 20041029, end: 20041029
  2. GLIMEPIRIDE [Concomitant]
  3. VALSARTAN [Concomitant]
  4. DILTIAZEM [Concomitant]
  5. FINASTERIDE [Concomitant]
  6. SULFAMETHOXAZOLE AND TRIMETHOPRIM [Concomitant]

REACTIONS (3)
  - BLOOD PRESSURE SYSTOLIC DECREASED [None]
  - DIZZINESS [None]
  - SYNCOPE [None]
